FAERS Safety Report 16412638 (Version 1)
Quarter: 2019Q2

REPORT INFORMATION
  Report Type: Spontaneous
  Country: CN (occurrence: CN)
  Receive Date: 20190611
  Receipt Date: 20190611
  Transmission Date: 20190711
  Serious: Yes (Other)
  Sender: FDA-Public Use
  Company Number: CN-BAXTER-2019BAX011198

PATIENT
  Age: 58 Year
  Sex: Male

DRUGS (2)
  1. 20% MANNITOL INJECTION [Suspect]
     Active Substance: MANNITOL
     Dosage: DRUG RE-INTRODUCED
     Route: 041
  2. 20% MANNITOL INJECTION [Suspect]
     Active Substance: MANNITOL
     Indication: SWELLING
     Route: 041
     Dates: start: 20190520, end: 20190526

REACTIONS (4)
  - Disease complication [Unknown]
  - Injection site phlebitis [Recovered/Resolved with Sequelae]
  - Ankle fracture [Unknown]
  - Injection site induration [Not Recovered/Not Resolved]

NARRATIVE: CASE EVENT DATE: 20190526
